FAERS Safety Report 11548732 (Version 1)
Quarter: 2015Q3

REPORT INFORMATION
  Report Type: Spontaneous
  Country: US (occurrence: US)
  Receive Date: 20150924
  Receipt Date: 20150924
  Transmission Date: 20151125
  Serious: No
  Sender: FDA-Public Use
  Company Number: US-INCYTE CORPORATION-2015IN001993

PATIENT
  Age: 78 Year
  Sex: Female

DRUGS (1)
  1. JAKAFI [Suspect]
     Active Substance: RUXOLITINIB
     Dosage: 15 MG, BID
     Route: 048
     Dates: start: 201502

REACTIONS (4)
  - Haemoglobin decreased [Unknown]
  - Constipation [Unknown]
  - Epistaxis [Unknown]
  - Dysuria [Unknown]

NARRATIVE: CASE EVENT DATE: 201505
